FAERS Safety Report 9588776 (Version 1)
Quarter: 2013Q4

REPORT INFORMATION
  Report Type: Spontaneous
  Country: US (occurrence: US)
  Receive Date: 20131003
  Receipt Date: 20131003
  Transmission Date: 20140711
  Serious: No
  Sender: FDA-Public Use
  Company Number: US-AMGEN-USASP2012065868

PATIENT
  Sex: Female
  Weight: 82.09 kg

DRUGS (13)
  1. ENBREL [Suspect]
     Indication: PRODUCT USED FOR UNKNOWN INDICATION
     Dosage: 50 MG, QWK
     Route: 058
  2. METHOTREXATE [Concomitant]
     Dosage: 2.5 MG, UNK
  3. ULTRAM ER [Concomitant]
     Dosage: 100 MG, UNK
  4. LANTUS [Concomitant]
     Dosage: 100/ML, UNK
  5. JANUMET [Concomitant]
     Dosage: 50-1000, UNK, UNK
  6. ERYTHROMYCIN [Concomitant]
     Dosage: 250 MG, BS
  7. CYMBALTA [Concomitant]
     Dosage: 20 MG, UNK
  8. VITAMIN B-12 [Concomitant]
     Dosage: 1000 MUG, UNK
  9. OMEPRAZOLE [Concomitant]
     Dosage: 40 MG, UNK
  10. TYLENOL                            /00020001/ [Concomitant]
     Dosage: 325 MG, UNK
  11. FLAXSEED OIL [Concomitant]
     Dosage: UNK
  12. ZOLPIDEM [Concomitant]
     Dosage: 10 MG, UNK
  13. DIOVAN [Concomitant]
     Dosage: 40 MG, UNK

REACTIONS (2)
  - Rash erythematous [Unknown]
  - Adverse event [Unknown]
